FAERS Safety Report 25136523 (Version 1)
Quarter: 2025Q1

REPORT INFORMATION
  Report Type: Spontaneous
  Country: US (occurrence: None)
  Receive Date: 20250328
  Receipt Date: 20250328
  Transmission Date: 20250409
  Serious: Yes (Hospitalization)
  Sender: FDA-CTU
  Company Number: None

PATIENT
  Age: 77 Year
  Sex: Male

DRUGS (3)
  1. GLIMEPIRIDE [Suspect]
     Active Substance: GLIMEPIRIDE
     Indication: Diabetes mellitus
  2. CIPROFLOXACIN [Suspect]
     Active Substance: CIPROFLOXACIN
  3. AMIODARONE [Suspect]
     Active Substance: AMIODARONE

REACTIONS (5)
  - Hypoglycaemia [None]
  - Confusional state [None]
  - Delirium [None]
  - Unresponsive to stimuli [None]
  - Drug interaction [None]

NARRATIVE: CASE EVENT DATE: 20250316
